FAERS Safety Report 24354879 (Version 2)
Quarter: 2024Q4

REPORT INFORMATION
  Report Type: Spontaneous
  Country: CA (occurrence: CA)
  Receive Date: 20240923
  Receipt Date: 20241122
  Transmission Date: 20250115
  Serious: Yes (Death, Other)
  Sender: HLS THERAPEUTICS
  Company Number: CA-HLS-202402276

PATIENT
  Sex: Male
  Weight: 72 kg

DRUGS (4)
  1. CLOZAPINE [Suspect]
     Active Substance: CLOZAPINE
     Indication: Product used for unknown indication
     Dosage: TABLETS DOSAGE FORM
     Route: 065
  2. RISPERIDONE [Concomitant]
     Active Substance: RISPERIDONE
     Dosage: 1 EVERY 1 DAYS?AMOUNT: 4 MILLIGRAM?NOT SPECIFIED DOSAGE FORM
     Route: 065
  3. SYNTHROID [Concomitant]
     Active Substance: LEVOTHYROXINE SODIUM
     Dosage: AMOUNT: 25 MICROGRAM?NOT SPECIFIED DOSAGE FORM
     Route: 065
  4. VITAMIN B12 [Concomitant]
     Active Substance: CYANOCOBALAMIN
     Dosage: 1 EVERY 1 DAYS?AMOUNT: 1000 MICROGRAM?NOT SPECIFIED DOSAGE FORM
     Route: 065

REACTIONS (2)
  - Death [Fatal]
  - Neutrophil count decreased [Fatal]
